FAERS Safety Report 5159797-8 (Version None)
Quarter: 2006Q4

REPORT INFORMATION
  Report Type: 
  Country: None (occurrence: None)
  Receive Date: 20061129
  Receipt Date: 20051220
  Transmission Date: 20070319
  Serious: Yes (Other)
  Sender: FDA-Public Use
  Company Number: US-GLAXOSMITHKLINE-A0586456A

PATIENT
  Age: 38 Year
  Sex: Female

DRUGS (3)
  1. WELLBUTRIN [Suspect]
     Indication: DEPRESSION
     Dosage: 200MG TWICE PER DAY
     Route: 048
     Dates: start: 20050126, end: 20050304
  2. LEXAPRO [Suspect]
     Route: 048
  3. TOBACCO [Concomitant]
     Route: 055

REACTIONS (2)
  - ADVERSE EVENT [None]
  - GRAND MAL CONVULSION [None]
